FAERS Safety Report 4871115-9 (Version None)
Quarter: 2005Q4

REPORT INFORMATION
  Report Type: 
  Country: None (occurrence: None)
  Receive Date: 20051115
  Receipt Date: 20050721
  Transmission Date: 20060501
  Serious: Yes (Other)
  Sender: FDA-Public Use
  Company Number: 404129

PATIENT
  Age: 34 Year
  Sex: Female

DRUGS (5)
  1. PEGASYS [Suspect]
     Indication: HEPATITIS C
     Dosage: 180 MCG 1 PER WEEK SUBCUTANEOUS
     Route: 058
     Dates: start: 20050414
  2. COPEGUS [Suspect]
     Indication: HEPATITIS C
     Dosage: 1000 MG DAILY ORAL
     Route: 048
     Dates: start: 20050414, end: 20050807
  3. PROZAC [Concomitant]
  4. ACETAMINOPHEN [Concomitant]
  5. FLEXERIL [Concomitant]

REACTIONS (22)
  - BACK PAIN [None]
  - COLITIS ULCERATIVE [None]
  - CONSTIPATION [None]
  - DEPRESSION [None]
  - DIFFICULTY IN WALKING [None]
  - DYSURIA [None]
  - FATIGUE [None]
  - HEADACHE [None]
  - INCREASED TENDENCY TO BRUISE [None]
  - INSOMNIA [None]
  - MYALGIA [None]
  - OCULAR HYPERAEMIA [None]
  - PARANOIA [None]
  - PHOTOPHOBIA [None]
  - PLATELET COUNT DECREASED [None]
  - POLLAKIURIA [None]
  - RASH [None]
  - RECTAL HAEMORRHAGE [None]
  - RED BLOOD CELL COUNT DECREASED [None]
  - URINARY TRACT INFECTION [None]
  - URINE ABNORMALITY [None]
  - WHITE BLOOD CELL COUNT DECREASED [None]
